FAERS Safety Report 5897434-5 (Version None)
Quarter: 2008Q3

REPORT INFORMATION
  Report Type: 
  Country: None (occurrence: None)
  Receive Date: 20080902
  Receipt Date: 20080627
  Transmission Date: 20090109
  Serious: Yes (Other)
  Sender: FDA-Public Use
  Company Number: 173585USA

PATIENT
  Sex: Male

DRUGS (1)
  1. AZITHROMYCIN [Suspect]

REACTIONS (6)
  - EMOTIONAL DISTRESS [None]
  - GENERAL PHYSICAL CONDITION ABNORMAL [None]
  - HEADACHE [None]
  - HEPATIC STEATOSIS [None]
  - PANCREATITIS [None]
  - VISION BLURRED [None]
